FAERS Safety Report 5605875-6 (Version None)
Quarter: 2008Q1

REPORT INFORMATION
  Report Type: 
  Country: None (occurrence: None)
  Receive Date: 20080129
  Receipt Date: 20080122
  Transmission Date: 20080703
  Serious: Yes (Disabling)
  Sender: FDA-Public Use
  Company Number: BR-ASTRAZENECA-2008UW01739

PATIENT
  Age: 57 Year
  Sex: Female
  Weight: 94 kg

DRUGS (2)
  1. SELOZOK [Suspect]
     Indication: HYPERTENSION
     Route: 048
  2. CLONAZEPAM [Concomitant]
     Indication: SEDATIVE THERAPY
     Dosage: HALF TABLET QD
     Route: 048
     Dates: start: 20050101

REACTIONS (1)
  - ARTICULAR CALCIFICATION [None]
